FAERS Safety Report 10780761 (Version 1)
Quarter: 2015Q1

REPORT INFORMATION
  Report Type: Spontaneous
  Country: FR (occurrence: FR)
  Receive Date: 20150210
  Receipt Date: 20150210
  Transmission Date: 20150721
  Serious: Yes (Hospitalization, Other)
  Sender: FDA-Public Use
  Company Number: FR-IMPAX LABORATORIES, INC-2015-IPXL-00103

PATIENT
  Age: 50 Year
  Sex: Male

DRUGS (3)
  1. BACLOFEN. [Suspect]
     Active Substance: BACLOFEN
     Dosage: 320 MG, DAILY
     Route: 065
  2. BACLOFEN. [Suspect]
     Active Substance: BACLOFEN
     Dosage: 210 MG, DAILY
  3. BACLOFEN. [Suspect]
     Active Substance: BACLOFEN
     Indication: ALCOHOLISM
     Dosage: UNK, DAILY (INCREASED TO 1 ADDITIONAL 10 MG TABLET EVERY 3 DAYS)
     Route: 065
     Dates: start: 20130412

REACTIONS (8)
  - Insomnia [Unknown]
  - Sensory disturbance [Unknown]
  - Delirium [Unknown]
  - Abnormal behaviour [Unknown]
  - Intentional overdose [Unknown]
  - Bradykinesia [Unknown]
  - Monoplegia [Recovered/Resolved]
  - Hyperhidrosis [Unknown]
